FAERS Safety Report 13207435 (Version 1)
Quarter: 2017Q1

REPORT INFORMATION
  Report Type: Spontaneous
  Country: US (occurrence: US)
  Receive Date: 20170209
  Receipt Date: 20170209
  Transmission Date: 20170428
  Serious: No
  Sender: FDA-Public Use
  Company Number: US-SA-2017SA002564

PATIENT
  Age: 61 Year
  Sex: Male
  Weight: 83.9 kg

DRUGS (6)
  1. HYDROCHLOROTHIAZIDE/LISINOPRIL [Concomitant]
     Indication: BLOOD PRESSURE MEASUREMENT
     Dosage: DAILY DOSE: 1-20-12.5 MG
     Dates: start: 2012
  2. VITAMIN D [Concomitant]
     Active Substance: CHOLECALCIFEROL
  3. PRALUENT [Suspect]
     Active Substance: ALIROCUMAB
     Indication: BLOOD CHOLESTEROL ABNORMAL
     Route: 065
     Dates: start: 20161209, end: 20161228
  4. ASPIRIN. [Concomitant]
     Active Substance: ASPIRIN
  5. ATENOLOL. [Concomitant]
     Active Substance: ATENOLOL
     Indication: BLOOD PRESSURE MEASUREMENT
  6. ALIROCUMAB PREFILLED PEN [Concomitant]
     Active Substance: ALIROCUMAB
     Dates: start: 201612

REACTIONS (5)
  - Insomnia [Not Recovered/Not Resolved]
  - Muscle spasms [Not Recovered/Not Resolved]
  - Product use issue [Unknown]
  - Neck pain [Not Recovered/Not Resolved]
  - Musculoskeletal stiffness [Not Recovered/Not Resolved]

NARRATIVE: CASE EVENT DATE: 2016
